FAERS Safety Report 6025377-5 (Version None)
Quarter: 2008Q4

REPORT INFORMATION
  Report Type: 
  Country: None (occurrence: None)
  Receive Date: 20081229
  Receipt Date: 20081229
  Transmission Date: 20090506
  Serious: Yes (Hospitalization)
  Sender: FDA-Public Use
  Company Number: None

PATIENT
  Age: 79 Year
  Sex: Male
  Weight: 110.2241 kg

DRUGS (1)
  1. LEVAQUIN [Suspect]

REACTIONS (1)
  - TENDON RUPTURE [None]
